FAERS Safety Report 4974994-X (Version None)
Quarter: 2006Q2

REPORT INFORMATION
  Report Type: 
  Country: None (occurrence: None)
  Receive Date: 20060414
  Receipt Date: 20060414
  Transmission Date: 20061013
  Serious: Yes (Life-Threatening)
  Sender: FDA-Public Use
  Company Number: None

PATIENT
  Sex: Female

DRUGS (1)
  1. HYDROMORPHONE HCL [Suspect]
     Indication: PAIN
     Dosage: 2 MG -    Q2-4 HR PRN PAIN  IV
     Route: 042
     Dates: start: 20060228, end: 20060228

REACTIONS (1)
  - RESPIRATORY DEPRESSION [None]
